FAERS Safety Report 6283397-X (Version None)
Quarter: 2009Q3

REPORT INFORMATION
  Report Type: 
  Country: None (occurrence: None)
  Receive Date: 20090724
  Receipt Date: 20090714
  Transmission Date: 20100115
  Serious: Yes (Other)
  Sender: FDA-Public Use
  Company Number: US-ABBOTT-09P-163-0585612-00

PATIENT
  Sex: Male
  Weight: 98.064 kg

DRUGS (7)
  1. NIASPAN [Suspect]
     Indication: HIGH DENSITY LIPOPROTEIN DECREASED
     Dates: start: 19990101
  2. NIASPAN [Suspect]
     Dates: end: 20020101
  3. NIASPAN [Suspect]
     Route: 048
  4. NIASPAN [Suspect]
     Dosage: 1000 MG TABLETS
     Dates: start: 20060401
  5. AVIPRO [Concomitant]
     Indication: DRUG USE FOR UNKNOWN INDICATION
  6. TOPROL-XL [Concomitant]
     Indication: DRUG USE FOR UNKNOWN INDICATION
  7. LIPITOR [Concomitant]
     Indication: DRUG USE FOR UNKNOWN INDICATION

REACTIONS (6)
  - DISSOCIATION [None]
  - DRUG INEFFECTIVE [None]
  - FLUSHING [None]
  - HIGH DENSITY LIPOPROTEIN ABNORMAL [None]
  - MYOCARDIAL INFARCTION [None]
  - PAIN [None]
